FAERS Safety Report 11855274 (Version 1)
Quarter: 2015Q4

REPORT INFORMATION
  Report Type: Spontaneous
  Country: FR (occurrence: FR)
  Receive Date: 20151221
  Receipt Date: 20151221
  Transmission Date: 20160305
  Serious: Yes (Other)
  Sender: FDA-Public Use
  Company Number: PHHY2015FR042124

PATIENT
  Age: 31 Year
  Sex: Female

DRUGS (2)
  1. CERIS [Concomitant]
     Active Substance: TROSPIUM CHLORIDE
     Indication: PRODUCT USED FOR UNKNOWN INDICATION
     Dosage: 1 DF (1 TABLET), QD
     Route: 048
  2. GILENYA [Suspect]
     Active Substance: FINGOLIMOD HYDROCHLORIDE
     Indication: MULTIPLE SCLEROSIS
     Dosage: 0.5 MG, QD
     Route: 048
     Dates: start: 201405, end: 201502

REACTIONS (3)
  - Maternal exposure during pregnancy [Unknown]
  - Oligohydramnios [Unknown]
  - Induced labour [Unknown]

NARRATIVE: CASE EVENT DATE: 20150117
